FAERS Safety Report 14684390 (Version 2)
Quarter: 2020Q4

REPORT INFORMATION
  Report Type: Spontaneous
  Country: JP (occurrence: JP)
  Receive Date: 20180327
  Receipt Date: 20201123
  Transmission Date: 20210113
  Serious: Yes (Other)
  Sender: FDA-Public Use
  Company Number: JP-PFIZER INC-2018120421

PATIENT
  Age: 77 Year
  Sex: Female
  Weight: 55.1 kg

DRUGS (1)
  1. SUTENT [Suspect]
     Active Substance: SUNITINIB MALATE
     Indication: PANCREATIC NEUROENDOCRINE TUMOUR
     Dosage: 25 MG, DAILY
     Route: 048
     Dates: start: 201703

REACTIONS (3)
  - Haemoperitoneum [Unknown]
  - Tumour rupture [Unknown]
  - Shock haemorrhagic [Unknown]
